FAERS Safety Report 9467526 (Version 4)
Quarter: 2013Q3

REPORT INFORMATION
  Report Type: Spontaneous
  Country: JP (occurrence: JP)
  Receive Date: 20130821
  Receipt Date: 20130918
  Transmission Date: 20140515
  Serious: Yes (Other)
  Sender: FDA-Public Use
  Company Number: JP-009507513-1308JPN008586

PATIENT
  Age: 68 Year
  Sex: Male
  Weight: 52 kg

DRUGS (7)
  1. BRIDION INTRAVENOUS 200MG [Suspect]
     Indication: NEUROMUSCULAR BLOCKADE REVERSAL
     Dosage: 100 MG, BID
     Route: 042
     Dates: start: 20130815, end: 20130815
  2. ESLAX [Concomitant]
     Indication: NEUROMUSCULAR BLOCKING THERAPY
     Dosage: DAILY DOSAGE UNKNOWN
     Route: 042
     Dates: start: 20130815, end: 20130815
  3. RISPERIDONE [Concomitant]
     Indication: SCHIZOPHRENIA
     Dosage: 1 MG, BID
     Route: 048
     Dates: end: 20130815
  4. MECOBALAMIN [Concomitant]
     Indication: NEUROPATHY PERIPHERAL
     Dosage: 500 MICROGRAM, PRN
     Route: 048
     Dates: start: 20130808, end: 20130814
  5. LYRICA [Concomitant]
     Indication: NEUROPATHY PERIPHERAL
     Dosage: 50 MG, BID
     Route: 048
     Dates: end: 20130808
  6. SEVOFLURANE [Concomitant]
     Indication: ABDOMINAL OPERATION
     Dosage: UNK
     Route: 055
     Dates: start: 20130815, end: 20130815
  7. ULTIVA [Concomitant]
     Indication: ABDOMINAL OPERATION
     Dosage: UNK
     Route: 042
     Dates: start: 20130815, end: 20130815

REACTIONS (5)
  - Respiratory arrest [Recovered/Resolved]
  - Gaze palsy [Recovered/Resolved]
  - Musculoskeletal stiffness [Recovered/Resolved]
  - Loss of consciousness [Recovered/Resolved]
  - Bronchospasm [Recovered/Resolved]
